FAERS Safety Report 19999356 (Version 1)
Quarter: 2021Q4

REPORT INFORMATION
  Report Type: Report from Study
  Country: ES (occurrence: ES)
  Receive Date: 20211027
  Receipt Date: 20211027
  Transmission Date: 20220303
  Serious: Yes (Hospitalization)
  Sender: FDA-Public Use
  Company Number: ES-ROCHE-2943208

PATIENT
  Sex: Female

DRUGS (20)
  1. ATEZOLIZUMAB [Suspect]
     Active Substance: ATEZOLIZUMAB
     Indication: HER2 positive breast cancer
     Route: 041
     Dates: start: 20210208, end: 20210421
  2. PERTUZUMAB [Suspect]
     Active Substance: PERTUZUMAB
     Indication: HER2 positive breast cancer
     Dosage: PERTUZUMAB WILL BE GIVEN I.V. ON DAY 1 EVERY 3 WEEKS IN ARMS HPCT, ACY FOLLOWED BY HPCT AND ATEZOLIZ
     Route: 042
     Dates: start: 20210208, end: 20210421
  3. TRASTUZUMAB [Suspect]
     Active Substance: TRASTUZUMAB
     Indication: HER2 positive breast cancer
     Dosage: TRASTUZUMAB WILL BE GIVEN I.V. ON DAY 1 EVERY 3 WEEKS IN ARMS HPCT, ACY FOLLOWED BY HPCT AND ATEZOLI
     Route: 041
     Dates: start: 20210208, end: 20210421
  4. PACLITAXEL [Suspect]
     Active Substance: PACLITAXEL
     Indication: HER2 positive breast cancer
     Dosage: PACLITAXEL WILL BE GIVEN I.V. ON DAY 1 AND DAY 8 EVERY 3 WEEKS IN ARMS HPCT, ACY FOLLOWED BY HPCT AN
     Route: 042
     Dates: start: 20210208, end: 20210428
  5. CARBOPLATIN [Suspect]
     Active Substance: CARBOPLATIN
     Indication: HER2 positive breast cancer
     Dosage: CARBOPLATIN WILL BE GIVEN I.V. ON DAY 1 AND DAY 8 EVERY 3 WEEKS IN ARMS HPCT, ACY FOLLOWED BY HPCT A
     Route: 042
     Dates: start: 20210208, end: 20210428
  6. AMOXICILLIN [Concomitant]
     Active Substance: AMOXICILLIN
     Route: 042
     Dates: start: 20210521, end: 20210522
  7. CLAVULANIC ACID [Concomitant]
     Active Substance: CLAVULANIC ACID
     Route: 042
     Dates: start: 20210521, end: 20210522
  8. BEMIPARIN [Concomitant]
     Active Substance: BEMIPARIN
     Dosage: TOTAL DAILY DOSE: 3500 UI
     Route: 058
     Dates: start: 20210521, end: 20210525
  9. ONDANSETRON [Concomitant]
     Active Substance: ONDANSETRON
     Route: 042
     Dates: start: 20210521, end: 20210521
  10. BISOPROLOL [Concomitant]
     Active Substance: BISOPROLOL
     Dates: start: 20210521, end: 20210522
  11. METHYLPREDNISOLONE [Concomitant]
     Active Substance: METHYLPREDNISOLONE
     Route: 042
     Dates: start: 20210521, end: 20210524
  12. METAMIZOLE [Concomitant]
     Active Substance: METAMIZOLE
     Route: 042
     Dates: start: 20210520, end: 20210521
  13. MAGNESIUM SULFATE [Concomitant]
     Active Substance: MAGNESIUM SULFATE
     Route: 042
     Dates: start: 20210521, end: 20210521
  14. HYDROCORTISONE [Concomitant]
     Active Substance: HYDROCORTISONE
     Route: 042
     Dates: start: 20210521, end: 20210521
  15. OMEPRAZOLE [Concomitant]
     Active Substance: OMEPRAZOLE
     Route: 042
     Dates: start: 20210521, end: 20210524
  16. OMEPRAZOLE [Concomitant]
     Active Substance: OMEPRAZOLE
     Dates: start: 20210524
  17. FOLIC ACID [Concomitant]
     Active Substance: FOLIC ACID
     Dates: start: 20210524
  18. METHYLPREDNISOLONE [Concomitant]
     Active Substance: METHYLPREDNISOLONE
     Dates: start: 20210524, end: 20210525
  19. SULFAMETHOXAZOLE [Concomitant]
     Active Substance: SULFAMETHOXAZOLE
     Dates: start: 20210524
  20. CALCIUM [Concomitant]
     Active Substance: CALCIUM
     Dosage: 600 UI
     Dates: start: 20210524

REACTIONS (1)
  - Hypophysitis [Recovered/Resolved]

NARRATIVE: CASE EVENT DATE: 20210519
